FAERS Safety Report 20756583 (Version 1)
Quarter: 2022Q2

REPORT INFORMATION
  Report Type: Spontaneous
  Country: US (occurrence: US)
  Receive Date: 20220427
  Receipt Date: 20220427
  Transmission Date: 20220721
  Serious: No
  Sender: FDA-Public Use
  Company Number: US-ORGANON-O2204USA001219

PATIENT
  Sex: Male

DRUGS (4)
  1. PREGNYL [Suspect]
     Active Substance: CHORIOGONADOTROPIN ALFA
     Indication: Testicular failure
     Dosage: 10000 INTERNATIONAL UNIT, INJECT 2,000 UNITS IN THE MUSCLE THREE TIMES PER WEEK (MONDAY, WEDNESDAY A
     Route: 030
     Dates: start: 20220412
  2. STERILE WATER [Suspect]
     Active Substance: WATER
     Dosage: UNK
  3. LATUDA [Concomitant]
     Active Substance: LURASIDONE HYDROCHLORIDE
     Dosage: UNK
  4. OLANZAPINE [Concomitant]
     Active Substance: OLANZAPINE
     Dosage: UNK

REACTIONS (5)
  - Mood swings [Unknown]
  - Irritability [Unknown]
  - Laboratory test abnormal [Unknown]
  - Product availability issue [Unknown]
  - Product dose omission issue [Unknown]
